FAERS Safety Report 17048680 (Version 1)
Quarter: 2019Q4

REPORT INFORMATION
  Report Type: Spontaneous
  Country: US (occurrence: US)
  Receive Date: 20191119
  Receipt Date: 20191119
  Transmission Date: 20200122
  Serious: No
  Sender: FDA-Public Use
  Company Number: US-IBSA PHARMA-TIR-2019-0771

PATIENT
  Sex: Female

DRUGS (1)
  1. TIROSINT [Suspect]
     Active Substance: LEVOTHYROXINE SODIUM
     Indication: PRODUCT USED FOR UNKNOWN INDICATION
     Dosage: 13MCG
     Route: 048

REACTIONS (4)
  - Oedema [Recovered/Resolved]
  - Vomiting [Unknown]
  - Product dispensing error [Unknown]
  - Fatigue [Not Recovered/Not Resolved]
